FAERS Safety Report 5357273-0 (Version None)
Quarter: 2007Q2

REPORT INFORMATION
  Report Type: 
  Country: None (occurrence: None)
  Receive Date: 20070614
  Receipt Date: 20070606
  Transmission Date: 20071010
  Serious: No
  Sender: FDA-Public Use
  Company Number: US-MERCK-0706USA01039M

PATIENT
  Age: 32 Year
  Sex: Female

DRUGS (5)
  1. INDOCIN [Suspect]
     Indication: THREATENED LABOUR
     Route: 048
     Dates: start: 20061101, end: 20070101
  2. ASPIRIN [Concomitant]
     Route: 065
  3. VITAMINS (UNSPECIFIED) [Concomitant]
     Route: 065
  4. FOLIC ACID [Concomitant]
     Route: 065
  5. PROCARDIA [Concomitant]
     Route: 065

REACTIONS (2)
  - DRUG EXPOSURE DURING PREGNANCY [None]
  - MALAISE [None]
